FAERS Safety Report 9185964 (Version 2)
Quarter: 2013Q2

REPORT INFORMATION
  Report Type: Spontaneous
  Country: US (occurrence: US)
  Receive Date: 20130325
  Receipt Date: 20130415
  Transmission Date: 20140414
  Serious: Yes (Other)
  Sender: FDA-Public Use
  Company Number: US-ASTRAZENECA-2013SE17202

PATIENT
  Age: 82 Year
  Sex: Female
  Weight: 73 kg

DRUGS (8)
  1. PULMICORT FLEXHALER [Suspect]
     Indication: ASTHMA
     Route: 055
  2. PULMICORT FLEXHALER [Suspect]
     Indication: ASTHMA
     Dosage: 2 PUFFS, TWO TIMES A DAY
     Route: 055
     Dates: start: 20130204
  3. PULMICORT FLEXHALER [Suspect]
     Indication: ASTHMA
     Route: 055
  4. AMLODIPINE [Suspect]
     Indication: HYPERTENSION
     Route: 065
  5. COZAAR [Suspect]
     Indication: HYPERTENSION
     Route: 065
  6. COZAAR [Suspect]
     Indication: HYPERTENSION
     Dosage: GENERIC
     Route: 065
  7. COZAAR [Suspect]
     Indication: HYPERTENSION
     Route: 065
  8. PLAVIX [Concomitant]
     Indication: ARTERIAL STENT INSERTION
     Route: 048
     Dates: start: 201203

REACTIONS (5)
  - Arterial occlusive disease [Unknown]
  - Dyspnoea [Recovered/Resolved]
  - Hypertension [Recovered/Resolved]
  - Local swelling [Recovered/Resolved]
  - Drug ineffective [Unknown]
